FAERS Safety Report 7656427-8 (Version None)
Quarter: 2011Q3

REPORT INFORMATION
  Report Type: 
  Country: None (occurrence: None)
  Receive Date: 20110804
  Receipt Date: 20110729
  Transmission Date: 20111222
  Serious: Yes (Hospitalization)
  Sender: FDA-Public Use
  Company Number: ZA-GLAXOSMITHKLINE-B0736884A

PATIENT
  Age: 72 Year
  Sex: Male

DRUGS (2)
  1. SULPHADIAZINE [Concomitant]
     Indication: PRODUCT USED FOR UNKNOWN INDICATION
     Route: 065
  2. LAMICTAL [Suspect]
     Indication: CONVULSION
     Dosage: 100MG PER DAY
     Route: 065
     Dates: start: 20110401

REACTIONS (3)
  - GANGRENE [None]
  - VASCULITIS [None]
  - RASH MACULAR [None]
